FAERS Safety Report 12612011 (Version 1)
Quarter: 2016Q3

REPORT INFORMATION
  Report Type: Report from Study
  Country: US (occurrence: US)
  Receive Date: 20160801
  Receipt Date: 20160801
  Transmission Date: 20161109
  Serious: Yes (Hospitalization)
  Sender: FDA-Public Use
  Company Number: US-BIOGEN-2016BI00270700

PATIENT
  Age: 36 Year
  Sex: Male

DRUGS (1)
  1. ALPROLIX [Suspect]
     Active Substance: EFTRENONACOG ALFA
     Indication: FACTOR IX DEFICIENCY
     Route: 042
     Dates: start: 201412

REACTIONS (5)
  - Pain [Unknown]
  - Head injury [Unknown]
  - Somnolence [Unknown]
  - Road traffic accident [Recovered/Resolved]
  - Lower limb fracture [Unknown]

NARRATIVE: CASE EVENT DATE: 20160725
